FAERS Safety Report 4350270-3 (Version None)
Quarter: 2004Q2

REPORT INFORMATION
  Report Type: 
  Country: None (occurrence: None)
  Receive Date: 20040428
  Receipt Date: 20040408
  Transmission Date: 20050107
  Serious: Yes (Other)
  Sender: FDA-Public Use
  Company Number: DSA_24230_2004

PATIENT
  Age: 69 Year
  Sex: Female

DRUGS (2)
  1. ENALAPRIL MALEATE [Suspect]
     Indication: HYPERTENSION
     Dosage: 2.5 MG PO
     Route: 048
     Dates: start: 20020410, end: 20020426
  2. BENDROFLUMETHIAZIDE [Concomitant]

REACTIONS (8)
  - BACK PAIN [None]
  - COUGH [None]
  - DRY THROAT [None]
  - DYSPNOEA [None]
  - FEELING HOT [None]
  - HEADACHE [None]
  - MOUTH ULCERATION [None]
  - SLEEP DISORDER [None]
